FAERS Safety Report 8955100 (Version 2)
Quarter: 2013Q1

REPORT INFORMATION
  Report Type: Spontaneous
  Country: US (occurrence: US)
  Receive Date: 20121207
  Receipt Date: 20130103
  Transmission Date: 20140127
  Serious: Yes (Other)
  Sender: FDA-Public Use
  Company Number: US-009507513-1211USA012180

PATIENT
  Age: 69 Year
  Sex: Female
  Weight: 72.56 kg

DRUGS (4)
  1. MIRALAX [Suspect]
     Indication: BOWEL PREPARATION
     Dosage: 17 G, ONCE
     Route: 048
     Dates: start: 20121105, end: 20121106
  2. SYNTHROID [Concomitant]
     Indication: THYROIDITIS
  3. LEXAPRO [Concomitant]
     Indication: PRODUCT USED FOR UNKNOWN INDICATION
  4. COREG [Concomitant]
     Indication: HYPERTENSION

REACTIONS (2)
  - Rectal prolapse [Not Recovered/Not Resolved]
  - Frequent bowel movements [Recovered/Resolved]
